FAERS Safety Report 8329504-6 (Version None)
Quarter: 2012Q2

REPORT INFORMATION
  Report Type: 
  Country: None (occurrence: None)
  Receive Date: 20120430
  Receipt Date: 20120418
  Transmission Date: 20120825
  Serious: Yes (Life-Threatening, Hospitalization)
  Sender: FDA-Public Use
  Company Number: 7126955

PATIENT
  Age: 32 Year
  Sex: Female

DRUGS (1)
  1. LEVOTHYROXINE SODIUM [Suspect]
     Indication: THYROIDECTOMY
     Dosage: 75 MG

REACTIONS (5)
  - BLOOD PRESSURE DECREASED [None]
  - ALTERED STATE OF CONSCIOUSNESS [None]
  - MATERNAL EXPOSURE TIMING UNSPECIFIED [None]
  - SUPRAVENTRICULAR TACHYCARDIA [None]
  - CHEST PAIN [None]
